FAERS Safety Report 10486232 (Version 1)
Quarter: 2014Q4

REPORT INFORMATION
  Report Type: Spontaneous
  Country: GB (occurrence: GB)
  Receive Date: 20141001
  Receipt Date: 20141001
  Transmission Date: 20150528
  Serious: Yes (Disabling, Other)
  Sender: FDA-Public Use
  Company Number: GB-NOVOPROD-423859

PATIENT
  Age: 37 Year
  Sex: Female
  Weight: 62 kg

DRUGS (1)
  1. LEVEMIR [Suspect]
     Active Substance: INSULIN DETEMIR
     Indication: TYPE 1 DIABETES MELLITUS
     Dosage: 9 IU, QD
     Route: 051
     Dates: start: 20140710

REACTIONS (5)
  - Depression [Recovering/Resolving]
  - Loss of libido [Recovering/Resolving]
  - Hypoglycaemia unawareness [Recovering/Resolving]
  - Abnormal weight gain [Recovering/Resolving]
  - Arthralgia [Recovering/Resolving]

NARRATIVE: CASE EVENT DATE: 20140710
